FAERS Safety Report 9201882 (Version 3)
Quarter: 2013Q3

REPORT INFORMATION
  Report Type: Report from Study
  Country: JP (occurrence: JP)
  Receive Date: 20130401
  Receipt Date: 20130719
  Transmission Date: 20140515
  Serious: Yes (Death, Hospitalization)
  Sender: FDA-Public Use
  Company Number: JP-AMGEN-JPNCT2013022035

PATIENT
  Age: 76 Year
  Sex: Male
  Weight: 55 kg

DRUGS (21)
  1. DARBEPOETIN ALFA [Suspect]
     Indication: NEPHROGENIC ANAEMIA
     Dosage: 60 MUG, QD
     Route: 058
     Dates: start: 20110208, end: 20110208
  2. DARBEPOETIN ALFA [Suspect]
     Dosage: 60 MUG, QD
     Route: 058
     Dates: start: 20110412, end: 20110412
  3. DARBEPOETIN ALFA [Suspect]
     Dosage: 60 MUG, Q4WK
     Route: 058
     Dates: start: 20110517, end: 20110614
  4. DARBEPOETIN ALFA [Suspect]
     Dosage: 60 MUG, Q3WK
     Route: 058
     Dates: start: 20110722, end: 20110810
  5. DARBEPOETIN ALFA [Suspect]
     Dosage: 60 MUG, Q4WK
     Route: 058
     Dates: start: 20110927, end: 20111027
  6. DARBEPOETIN ALFA [Suspect]
     Dosage: 60 MUG, QD
     Route: 058
     Dates: start: 20111207, end: 20111207
  7. DARBEPOETIN ALFA [Suspect]
     Dosage: 60 MUG, QD
     Route: 058
     Dates: start: 20120111, end: 20120111
  8. DARBEPOETIN ALFA [Suspect]
     Dosage: 60 MUG, QD
     Route: 058
     Dates: start: 20120327, end: 20120327
  9. ACARDI [Concomitant]
     Dosage: UNK
     Route: 048
  10. DIOVAN [Concomitant]
     Dosage: UNK
     Route: 048
  11. MEXITIL [Concomitant]
     Dosage: UNK
     Route: 048
  12. BASEN [Concomitant]
     Dosage: UNK
     Route: 048
  13. NORVASC [Concomitant]
     Dosage: UNK
     Route: 048
  14. LASIX [Concomitant]
     Dosage: UNK
     Route: 048
  15. WARFARIN [Concomitant]
     Dosage: UNK
     Route: 048
  16. HALCION [Concomitant]
     Dosage: UNK
     Route: 048
  17. ARGAMATE [Concomitant]
     Dosage: UNK
     Route: 048
  18. PARIET [Concomitant]
     Dosage: UNK
     Route: 048
  19. PERSANTIN [Concomitant]
     Indication: DIABETIC NEPHROPATHY
     Dosage: UNK
     Route: 048
  20. ZYLORIC [Concomitant]
     Dosage: UNK
     Route: 048
  21. SOLDEM 1 [Concomitant]
     Indication: DIABETIC NEPHROPATHY
     Dosage: UNK
     Route: 041

REACTIONS (1)
  - Renal failure [Fatal]
